FAERS Safety Report 22235917 (Version 2)
Quarter: 2023Q2

REPORT INFORMATION
  Report Type: Spontaneous
  Country: US (occurrence: None)
  Receive Date: 20230420
  Receipt Date: 20230523
  Transmission Date: 20230722
  Serious: No
  Sender: FDA-Public Use
  Company Number: 2023A077608

PATIENT
  Sex: Female
  Weight: 90.7 kg

DRUGS (1)
  1. CALQUENCE [Suspect]
     Active Substance: ACALABRUTINIB
     Indication: Mantle cell lymphoma
     Route: 048
     Dates: start: 202107

REACTIONS (10)
  - Joint swelling [Unknown]
  - Vision blurred [Unknown]
  - Brain fog [Unknown]
  - Decreased appetite [Unknown]
  - Taste disorder [Unknown]
  - Weight increased [Unknown]
  - Myalgia [Unknown]
  - Fatigue [Unknown]
  - Asthenia [Unknown]
  - Contusion [Unknown]
